FAERS Safety Report 17041586 (Version 19)
Quarter: 2020Q4

REPORT INFORMATION
  Report Type: Report from Study
  Country: CH (occurrence: CH)
  Receive Date: 20191118
  Receipt Date: 20201029
  Transmission Date: 20210113
  Serious: Yes (Death, Hospitalization, Other)
  Sender: FDA-Public Use
  Company Number: CH-BRISTOL-MYERS SQUIBB COMPANY-BMS-2019-080674

PATIENT
  Age: 61 Year
  Sex: Female
  Weight: 54 kg

DRUGS (26)
  1. MST CONTINUS [Concomitant]
     Active Substance: MORPHINE SULFATE
     Indication: CANCER PAIN
     Dosage: 20 MILLIGRAM, QD
     Route: 048
     Dates: start: 20190118, end: 20191105
  2. MST CONTINUS [Concomitant]
     Active Substance: MORPHINE SULFATE
     Dosage: 90 MILLIGRAM, QD
     Route: 048
     Dates: start: 20200416
  3. INFLIXIMAB [Concomitant]
     Active Substance: INFLIXIMAB
     Indication: PRODUCT USED FOR UNKNOWN INDICATION
     Dosage: 1 DOSAGE FORM (PER NEEDED)
     Route: 042
     Dates: start: 20190731, end: 20190731
  4. NOVALGIN [CAFFEINE;PARACETAMOL;PROPYPHENAZONE] [Concomitant]
     Active Substance: ACETAMINOPHEN\CAFFEINE\PROPYPHENAZONE
     Indication: CANCER PAIN
     Dosage: 4 GRAM (DAILY)
     Route: 048
     Dates: start: 20190118, end: 20190917
  5. REMERON [Concomitant]
     Active Substance: MIRTAZAPINE
     Indication: INSOMNIA
     Dosage: 15 MILLIGRAM, QD
     Route: 048
     Dates: start: 20191105
  6. MST [MORPHINE SULFATE] [Concomitant]
     Active Substance: MORPHINE SULFATE
     Indication: CANCER PAIN
     Dosage: 40 MILLIGRAM, QD
     Route: 048
     Dates: start: 20191105, end: 20200415
  7. ALUCOL [ALGELDRATE;MAGNESIUM HYDROXIDE] [Concomitant]
     Indication: GASTRIC DISORDER
     Dosage: 40 MILLIGRAM, QD
     Route: 048
     Dates: start: 20191003, end: 20200113
  8. IMODIUM [Concomitant]
     Active Substance: LOPERAMIDE HYDROCHLORIDE
     Indication: PRODUCT USED FOR UNKNOWN INDICATION
     Dosage: 2 MILLIGRAM (LINGUAL  4 TIMES)
     Route: 048
  9. PANTOZOL [Concomitant]
     Active Substance: PANTOPRAZOLE SODIUM
     Indication: PROPHYLAXIS
     Dosage: 40 MILLIGRAM, BID (DAILY)
     Route: 048
     Dates: start: 20190304
  10. MST CONTINUS [Concomitant]
     Active Substance: MORPHINE SULFATE
     Dosage: 20 MILLIGRAM, QD
     Route: 048
     Dates: start: 20190118, end: 20190118
  11. LIXIANA [Concomitant]
     Active Substance: EDOXABAN TOSYLATE
     Indication: ANTICOAGULANT THERAPY
     Dosage: 30 MILLIGRAM
     Route: 048
     Dates: start: 20191105
  12. ACIDUM FOLICUM [Concomitant]
     Active Substance: FOLIC ACID
     Indication: VITAMIN SUPPLEMENTATION
     Dosage: 5 MILLIGRAM, QD
     Route: 048
     Dates: start: 20191105, end: 20200113
  13. DAFALGAN [Concomitant]
     Active Substance: ACETAMINOPHEN
     Indication: CANCER PAIN
     Dosage: 3 GRAM, QD
     Route: 048
     Dates: start: 20200113
  14. PREGABALIN. [Concomitant]
     Active Substance: PREGABALIN
     Indication: CANCER PAIN
     Dosage: 50 MILLIGRAM, QD
     Route: 048
     Dates: start: 20200113
  15. KALCIPOS D3 [Concomitant]
     Indication: MINERAL SUPPLEMENTATION
     Dosage: 500 MILLIGRAM, QD
     Route: 048
     Dates: start: 20190812
  16. INFLIXIMAB [Concomitant]
     Active Substance: INFLIXIMAB
     Dosage: 250 MILLIGRAM
     Route: 042
     Dates: start: 20190731, end: 20190731
  17. MUCO MEPHA [Concomitant]
     Indication: LUNG DISORDER
     Dosage: 600 MILLIGRAM, QD
     Route: 048
     Dates: start: 20190812, end: 20200113
  18. DUROGESIC [Concomitant]
     Active Substance: FENTANYL
     Indication: CANCER PAIN
     Dosage: 37 MICROGRAM, PRN
     Route: 062
     Dates: start: 20200214, end: 20200416
  19. NOVALGIN [CAFFEINE;PARACETAMOL;PROPYPHENAZONE] [Concomitant]
     Active Substance: ACETAMINOPHEN\CAFFEINE\PROPYPHENAZONE
     Dosage: 80 GTT DROPS, QD
     Route: 048
     Dates: start: 20190916, end: 20191105
  20. SPIRICORT [Concomitant]
     Active Substance: PREDNISOLONE
     Indication: AUTOIMMUNE COLITIS
     Dosage: UNK
     Route: 065
     Dates: start: 20190719, end: 20190803
  21. TEMESTA EXPIDET [Concomitant]
     Active Substance: LORAZEPAM
     Indication: INSOMNIA
     Dosage: 1 MILLIGRAM, QD
     Route: 060
     Dates: start: 20191105
  22. NIVOLUMAB [Suspect]
     Active Substance: NIVOLUMAB
     Indication: PRODUCT USED FOR UNKNOWN INDICATION
     Dosage: 1 DOSAGE FORM, Q2WK
     Route: 042
     Dates: start: 20190606, end: 20190624
  23. ALUCOL [ALUMINIUM HYDROXIDE;MAGNESIUM HYDROXIDE] [Concomitant]
     Indication: PROPHYLAXIS AGAINST GASTROINTESTINAL ULCER
     Dosage: 40 MILLILITER, QD
     Route: 048
     Dates: start: 20191003, end: 20200113
  24. CETIRIZIN [Concomitant]
     Active Substance: CETIRIZINE HYDROCHLORIDE
     Indication: PRODUCT USED FOR UNKNOWN INDICATION
     Dosage: 10 MILLIGRAM
     Route: 048
     Dates: start: 20190812, end: 20191105
  25. ALUCOL [ALGELDRATE;MAGNESIUM HYDROXIDE] [Concomitant]
     Indication: PROPHYLAXIS
  26. NOVALGIN (METAMIZOLE SODIUM) [Concomitant]
     Active Substance: METAMIZOLE SODIUM
     Indication: PRODUCT USED FOR UNKNOWN INDICATION
     Dosage: 500 MILLIGRAM
     Route: 048

REACTIONS (4)
  - Autoimmune colitis [Unknown]
  - Campylobacter colitis [Recovered/Resolved]
  - Weight decreased [Unknown]
  - Malignant neoplasm progression [Fatal]

NARRATIVE: CASE EVENT DATE: 20190630
